FAERS Safety Report 7990051-2 (Version None)
Quarter: 2011Q4

REPORT INFORMATION
  Report Type: 
  Country: None (occurrence: None)
  Receive Date: 20111215
  Receipt Date: 20111202
  Transmission Date: 20120403
  Serious: Yes (Other)
  Sender: FDA-Public Use
  Company Number: GGEL20111201608

PATIENT

DRUGS (1)
  1. NORETHINDRONE [Suspect]
     Dosage: TRANSMAMMARY
     Route: 063

REACTIONS (1)
  - EXPOSURE DURING BREAST FEEDING [None]
